FAERS Safety Report 5821004-8 (Version None)
Quarter: 2008Q3

REPORT INFORMATION
  Report Type: 
  Country: None (occurrence: None)
  Receive Date: 20080724
  Receipt Date: 20080714
  Transmission Date: 20090109
  Serious: No
  Sender: FDA-Public Use
  Company Number: US-JNJFOC-20080504767

PATIENT
  Sex: Female
  Weight: 84.37 kg

DRUGS (12)
  1. DURAGESIC-100 [Suspect]
     Route: 062
  2. DURAGESIC-100 [Suspect]
     Route: 062
  3. DURAGESIC-100 [Suspect]
     Route: 062
  4. DURAGESIC-100 [Suspect]
     Route: 062
  5. DURAGESIC-100 [Suspect]
     Indication: CYSTITIS INTERSTITIAL
     Route: 062
  6. CIPRO [Suspect]
     Indication: CYSTITIS INTERSTITIAL
     Route: 048
  7. PYRIDIUM [Concomitant]
     Indication: BLADDER DISORDER
     Route: 048
  8. DITROPAN XL [Concomitant]
     Indication: BLADDER DISORDER
     Route: 048
  9. ATARAX [Concomitant]
     Dosage: IN THE PM  2X 25MG
     Route: 048
  10. ATARAX [Concomitant]
     Indication: BLADDER DISORDER
     Dosage: IN THE AM
     Route: 048
  11. NORVASC [Concomitant]
     Indication: BLOOD PRESSURE
     Route: 048
  12. PREDNISONE TAB [Concomitant]
     Indication: BLADDER DISORDER
     Route: 048

REACTIONS (1)
  - NO ADVERSE EVENT [None]
